FAERS Safety Report 4288701-X (Version None)
Quarter: 2004Q1

REPORT INFORMATION
  Report Type: 
  Country: None (occurrence: None)
  Receive Date: 20040209
  Receipt Date: 20040202
  Transmission Date: 20041129
  Serious: Yes (Other)
  Sender: FDA-Public Use
  Company Number: WAES 0402GBR00034

PATIENT
  Age: 83 Year
  Sex: Male

DRUGS (7)
  1. ALLOPURINOL [Concomitant]
  2. ASPIRIN [Concomitant]
     Route: 048
  3. ISOSORBIDE MONONITRATE [Concomitant]
  4. LANSOPRAZOLE [Concomitant]
  5. NITROGLYCERIN [Concomitant]
     Route: 060
  6. RAMIPRIL [Concomitant]
  7. ZOCOR [Suspect]
     Indication: HYPERCHOLESTEROLAEMIA
     Route: 048
     Dates: start: 20040103, end: 20040123

REACTIONS (1)
  - CONFUSIONAL STATE [None]
